FAERS Safety Report 21768019 (Version 2)
Quarter: 2022Q4

REPORT INFORMATION
  Report Type: Report from Study
  Country: IL (occurrence: None)
  Receive Date: 20221222
  Receipt Date: 20221227
  Transmission Date: 20230113
  Serious: Yes (Hospitalization)
  Sender: FDA-Public Use
  Company Number: IL-ROCHE-3242305

PATIENT
  Age: 76 Year
  Sex: Female
  Weight: 74 kg

DRUGS (10)
  1. MOSUNETUZUMAB [Suspect]
     Active Substance: MOSUNETUZUMAB
     Indication: Diffuse large B-cell lymphoma
     Dosage: START/END DATE OF MOST RECENT DOSE OF STUDY DRUG?PRIOR TO AE/SAE 28/SEP/2022, 45MG
     Route: 058
     Dates: start: 20220503
  2. POLATUZUMAB VEDOTIN [Suspect]
     Active Substance: POLATUZUMAB VEDOTIN
     Indication: Diffuse large B-cell lymphoma
     Dosage: START DATE OF MOST RECENT DOSE OF STUDY DRUG?PRIOR TO AE/SAE 17-AUG-2022, 140MG
     Route: 042
     Dates: start: 20220503
  3. LOSARTAN POTASSIUM AND HYDROCHLOROTHIAZIDE [Concomitant]
     Active Substance: HYDROCHLOROTHIAZIDE\LOSARTAN POTASSIUM
     Route: 048
     Dates: start: 20010501
  4. NIFEDIPINE [Concomitant]
     Active Substance: NIFEDIPINE
     Route: 048
     Dates: start: 20010501
  5. AMOXICILLIN [Concomitant]
     Active Substance: AMOXICILLIN
     Route: 048
     Dates: start: 20220613
  6. ROXO [Concomitant]
     Route: 048
     Dates: start: 20220615
  7. ACETAMINOPHEN [Concomitant]
     Active Substance: ACETAMINOPHEN
     Route: 048
  8. CYCLOPHOSPHAMIDE\DOXORUBICIN\PREDNISONE\VINCRISTINE [Concomitant]
     Active Substance: CYCLOPHOSPHAMIDE\DOXORUBICIN\PREDNISONE\VINCRISTINE
     Indication: Neoplasm malignant
     Dates: start: 20221019
  9. ROXITHROMYCIN [Concomitant]
     Active Substance: ROXITHROMYCIN
     Route: 048
     Dates: start: 20221212, end: 20221217
  10. RITUXIMAB [Concomitant]
     Active Substance: RITUXIMAB
     Indication: Neoplasm malignant
     Route: 065
     Dates: start: 20221019

REACTIONS (2)
  - COVID-19 [Recovered/Resolved]
  - Febrile neutropenia [Recovering/Resolving]

NARRATIVE: CASE EVENT DATE: 20221124
